FAERS Safety Report 5033923-3 (Version None)
Quarter: 2006Q2

REPORT INFORMATION
  Report Type: 
  Country: None (occurrence: None)
  Receive Date: 20060623
  Receipt Date: 20060609
  Transmission Date: 20061013
  Serious: Yes (Life-Threatening, Hospitalization, Disabling)
  Sender: FDA-Public Use
  Company Number: DEWYE636118MAY06

PATIENT
  Sex: Male

DRUGS (3)
  1. ENBREL [Suspect]
     Indication: PSORIATIC ARTHROPATHY
     Dosage: UNKNOWN
     Route: 058
     Dates: start: 20060301, end: 20060325
  2. ENBREL [Suspect]
     Indication: AUTOIMMUNE DISORDER
  3. ISONIAZID [Suspect]
     Indication: TUBERCULOSIS
     Dosage: UNKNOWN
     Route: 065
     Dates: start: 20060201, end: 20060301

REACTIONS (4)
  - PLEURAL EFFUSION [None]
  - PNEUMONIA [None]
  - PULMONARY EMBOLISM [None]
  - VENOUS THROMBOSIS LIMB [None]
